FAERS Safety Report 4719108-6 (Version None)
Quarter: 2005Q3

REPORT INFORMATION
  Report Type: 
  Country: None (occurrence: None)
  Receive Date: 20050719
  Receipt Date: 20050630
  Transmission Date: 20060218
  Serious: Yes (Death, Hospitalization)
  Sender: FDA-Public Use
  Company Number: 2005-0008471

PATIENT
  Age: 60 Year
  Sex: Male

DRUGS (3)
  1. VIREAD [Suspect]
     Indication: HIV INFECTION
     Dosage: 300 MG, 1 IN 1 D, ORAL
     Route: 048
     Dates: start: 20030515, end: 20040327
  2. ABACAVIR (ABACAVIR) [Suspect]
     Indication: NEUROPATHY PERIPHERAL
     Dates: start: 20031021, end: 20040327
  3. NEVIRAPINE [Concomitant]

REACTIONS (18)
  - ALANINE AMINOTRANSFERASE INCREASED [None]
  - ANAEMIA [None]
  - ASPARTATE AMINOTRANSFERASE INCREASED [None]
  - BLOOD AMYLASE INCREASED [None]
  - BLOOD BICARBONATE DECREASED [None]
  - BLOOD CREATININE INCREASED [None]
  - BLOOD LACTATE DEHYDROGENASE INCREASED [None]
  - COMA [None]
  - DRUG INTERACTION [None]
  - DRUG TOXICITY [None]
  - DYSPNOEA [None]
  - HEART RATE DECREASED [None]
  - LACTIC ACIDOSIS [None]
  - MULTI-ORGAN FAILURE [None]
  - NEUROPATHY PERIPHERAL [None]
  - OXYGEN SATURATION DECREASED [None]
  - PCO2 INCREASED [None]
  - TRANSAMINASES INCREASED [None]
